FAERS Safety Report 12480606 (Version 2)
Quarter: 2016Q2

REPORT INFORMATION
  Report Type: Spontaneous
  Country: FR (occurrence: FR)
  Receive Date: 20160620
  Receipt Date: 20160628
  Transmission Date: 20160815
  Serious: Yes (Life-Threatening, Hospitalization, Other)
  Sender: FDA-Public Use
  Company Number: FR-GLAXOSMITHKLINE-FR2016GSK086034

PATIENT
  Age: 80 Year
  Sex: Male

DRUGS (9)
  1. ZELITREX [Suspect]
     Active Substance: VALACYCLOVIR HYDROCHLORIDE
     Indication: ANTIVIRAL PROPHYLAXIS
     Dosage: 500 MG, 1D
     Route: 048
     Dates: start: 20160422, end: 20160506
  2. INEXIUM [Suspect]
     Active Substance: ESOMEPRAZOLE
     Dosage: 40 MG, Z
     Dates: start: 20160421, end: 20160511
  3. VELCADE [Suspect]
     Active Substance: BORTEZOMIB
     Dosage: 2 MG/M2, UNK
     Dates: start: 20160518
  4. NEODEX (DEXAMETHASONE ACETATE) [Concomitant]
     Active Substance: DEXAMETHASONE ACETATE
     Indication: PLASMA CELL MYELOMA
     Dosage: 40 MG, 1D
     Route: 048
     Dates: start: 20160421, end: 20160424
  5. ZELITREX [Suspect]
     Active Substance: VALACYCLOVIR HYDROCHLORIDE
     Dosage: 250 MG, QD
     Dates: start: 20160511
  6. INEXIUM [Suspect]
     Active Substance: ESOMEPRAZOLE
     Indication: PROPHYLAXIS AGAINST GASTROINTESTINAL ULCER
     Dosage: 20 MG, QD
     Route: 048
     Dates: start: 20160420, end: 20160511
  7. NEODEX (DEXAMETHASONE ACETATE) [Concomitant]
     Active Substance: DEXAMETHASONE ACETATE
     Dosage: 20 MG, UNK (ONCE A WEEK)
     Dates: start: 20160518
  8. BACTRIM [Suspect]
     Active Substance: SULFAMETHOXAZOLE\TRIMETHOPRIM
     Indication: TOXOPLASMOSIS PROPHYLAXIS
     Dosage: 400 MG, 1D
     Route: 048
     Dates: start: 20160421, end: 20160508
  9. VELCADE [Suspect]
     Active Substance: BORTEZOMIB
     Indication: PLASMA CELL MYELOMA
     Dosage: 2.6 MG, CYC  (1.3 MG/M2)
     Route: 058
     Dates: start: 20160421, end: 20160501

REACTIONS (3)
  - Incorrect dose administered [Unknown]
  - Encephalopathy [Recovered/Resolved]
  - Coma [Recovered/Resolved]

NARRATIVE: CASE EVENT DATE: 20160422
